FAERS Safety Report 14196292 (Version 2)
Quarter: 2018Q2

REPORT INFORMATION
  Report Type: Spontaneous
  Country: US (occurrence: US)
  Receive Date: 20171116
  Receipt Date: 20180507
  Transmission Date: 20180711
  Serious: Yes (Hospitalization, Other)
  Sender: FDA-Public Use
  Company Number: US-DSJP-DSU-2017-145010

PATIENT

DRUGS (2)
  1. BENICAR HCT [Suspect]
     Active Substance: HYDROCHLOROTHIAZIDE\OLMESARTAN MEDOXOMIL
     Dosage: 40-12.5MG, QD
     Route: 048
     Dates: start: 20140209, end: 20160914
  2. BENICAR HCT [Suspect]
     Active Substance: HYDROCHLOROTHIAZIDE\OLMESARTAN MEDOXOMIL
     Indication: PRODUCT USED FOR UNKNOWN INDICATION
     Dosage: 40-25MG, QD
     Route: 048
     Dates: start: 20140209, end: 20160914

REACTIONS (7)
  - Sprue-like enteropathy [Recovered/Resolved]
  - Diverticulum [Unknown]
  - Gastrooesophageal reflux disease [Unknown]
  - Clostridium difficile colitis [Recovering/Resolving]
  - Acute kidney injury [Recovering/Resolving]
  - Diverticulitis [Unknown]
  - Polyp [Recovered/Resolved]

NARRATIVE: CASE EVENT DATE: 20151019
